FAERS Safety Report 6762521-6 (Version None)
Quarter: 2010Q2

REPORT INFORMATION
  Report Type: 
  Country: None (occurrence: None)
  Receive Date: 20100609
  Receipt Date: 20100602
  Transmission Date: 20101027
  Serious: Yes (Hospitalization)
  Sender: FDA-Public Use
  Company Number: DE-ASTRAZENECA-2010SE25847

PATIENT
  Age: 56 Year
  Sex: Female

DRUGS (2)
  1. SEROQUEL [Suspect]
     Dosage: ADMINISTERED: 200 MG
     Route: 048
  2. SEROQUEL [Suspect]
     Dosage: PRESCRIBED
     Route: 048

REACTIONS (6)
  - BLOOD PRESSURE DECREASED [None]
  - DRY MOUTH [None]
  - INCORRECT DRUG DOSAGE FORM ADMINISTERED [None]
  - NASAL CONGESTION [None]
  - OROPHARYNGEAL SPASM [None]
  - VERTIGO [None]
